FAERS Safety Report 15827865 (Version 2)
Quarter: 2019Q1

REPORT INFORMATION
  Report Type: Spontaneous
  Country: US (occurrence: US)
  Receive Date: 20190115
  Receipt Date: 20190331
  Transmission Date: 20190417
  Serious: Yes (Other)
  Sender: FDA-Public Use
  Company Number: US-009507513-1901USA002772

PATIENT

DRUGS (7)
  1. CIPROFLOXACIN. [Concomitant]
     Active Substance: CIPROFLOXACIN
     Indication: BACTERAEMIA
     Route: 048
  2. CIPROFLOXACIN. [Concomitant]
     Active Substance: CIPROFLOXACIN
     Dosage: 750 MILLIGRAM, Q12H
  3. ZERBAXA [Suspect]
     Active Substance: CEFTOLOZANE SULFATE\TAZOBACTAM SODIUM
     Dosage: 3 GRAM, Q8H, GIVEN OVER 4 HOURS
  4. MEROPENEM. [Concomitant]
     Active Substance: MEROPENEM
     Indication: BACTERAEMIA
     Dosage: 500 MILLIGRAM, Q6H
  5. TOBRAMYCIN. [Concomitant]
     Active Substance: TOBRAMYCIN
     Indication: BACTERAEMIA
     Dosage: 7 MILLIGRAM/KILOGRAM, Q24H
  6. ZERBAXA [Suspect]
     Active Substance: CEFTOLOZANE SULFATE\TAZOBACTAM SODIUM
     Indication: BACTERAEMIA
     Dosage: 1.5 GRAM, Q8H
  7. ZERBAXA [Suspect]
     Active Substance: CEFTOLOZANE SULFATE\TAZOBACTAM SODIUM
     Dosage: 4.5 GRAM OVER 24 H AS A CONTINUOUS INFUSION
     Route: 041

REACTIONS (1)
  - Pathogen resistance [Recovered/Resolved]
